FAERS Safety Report 8851405 (Version 3)
Quarter: 2013Q4

REPORT INFORMATION
  Report Type: Spontaneous
  Country: HU (occurrence: HU)
  Receive Date: 20121022
  Receipt Date: 20131118
  Transmission Date: 20140711
  Serious: Yes (Hospitalization)
  Sender: FDA-Public Use
  Company Number: HU-ROCHE-1146830

PATIENT
  Age: 57 Year
  Sex: Female

DRUGS (3)
  1. MABTHERA [Suspect]
     Indication: RHEUMATOID ARTHRITIS
     Route: 041
     Dates: start: 20091008, end: 20120615
  2. LEFLUNOMIDE [Concomitant]
  3. SULPHASALAZINE [Concomitant]

REACTIONS (1)
  - Malignant melanoma [Unknown]
